FAERS Safety Report 21514423 (Version 1)
Quarter: 2022Q4

REPORT INFORMATION
  Report Type: Spontaneous
  Country: IT (occurrence: IT)
  Receive Date: 20221027
  Receipt Date: 20221027
  Transmission Date: 20230113
  Serious: Yes (Hospitalization)
  Sender: FDA-Public Use
  Company Number: None

PATIENT
  Age: 64 Year
  Sex: Male
  Weight: 92 kg

DRUGS (4)
  1. CARBOPLATIN [Suspect]
     Active Substance: CARBOPLATIN
     Indication: Small cell lung cancer metastatic
     Dosage: 492.06 MG, CYCLIC, EVERY 2 DAYS
     Route: 042
     Dates: start: 20220408, end: 20221014
  2. CARBOPLATIN [Suspect]
     Active Substance: CARBOPLATIN
     Dosage: 492.06 MG, CYCLIC, EVERY 2 DAYS
     Route: 042
     Dates: start: 20220408, end: 20221014
  3. ARMISARTE [PEMETREXED DISODIUM] [Concomitant]
     Indication: Small cell lung cancer metastatic
     Dosage: 400MG/MQ DAY1 Q21
  4. KEYTRUDA [Concomitant]
     Active Substance: PEMBROLIZUMAB
     Indication: Small cell lung cancer metastatic

REACTIONS (5)
  - Petit mal epilepsy [Recovered/Resolved]
  - Generalised tonic-clonic seizure [Recovered/Resolved]
  - Vomiting [Recovered/Resolved]
  - Face oedema [Recovered/Resolved]
  - Abdominal pain upper [Recovered/Resolved]

NARRATIVE: CASE EVENT DATE: 20221014
